FAERS Safety Report 9771154 (Version 2)
Quarter: 2013Q4

REPORT INFORMATION
  Report Type: Spontaneous
  Country: US (occurrence: US)
  Receive Date: 20131218
  Receipt Date: 20131218
  Transmission Date: 20140711
  Serious: Yes (Other)
  Sender: FDA-Public Use
  Company Number: US-MYLANLABS-2013S1027721

PATIENT
  Age: 67 Year
  Sex: Female
  Weight: 54.43 kg

DRUGS (13)
  1. EPIPEN [Suspect]
     Indication: ANAPHYLACTIC REACTION
     Route: 030
     Dates: start: 20131015, end: 20131015
  2. CLONIDINE HYDROCHLORIDE TABLETS, USP [Suspect]
     Indication: BLOOD PRESSURE INCREASED
     Route: 048
     Dates: end: 201310
  3. NIACIN [Concomitant]
     Indication: BLOOD CHOLESTEROL INCREASED
  4. MONTELUKAST [Concomitant]
  5. FLUTICASONE [Concomitant]
  6. DIAZEPAM [Concomitant]
     Indication: STRESS
  7. PHENOBARBITAL [Concomitant]
     Indication: IRRITABLE BOWEL SYNDROME
  8. HYDROCHLOROTHIAZIDE [Concomitant]
     Indication: FLUID RETENTION
  9. LEVOTHYROXINE [Concomitant]
     Indication: HYPOTHYROIDISM
  10. CALCIUM [Concomitant]
  11. VITAMIN D [Concomitant]
  12. MULTIVITAMIN [Concomitant]
  13. MIRALAX /00754501/ [Concomitant]

REACTIONS (6)
  - Drug ineffective [Recovered/Resolved]
  - Convulsion [Recovered/Resolved]
  - Chest pain [Recovered/Resolved]
  - Chest discomfort [Recovered/Resolved]
  - Blood pressure systolic increased [Recovered/Resolved]
  - Amnesia [Not Recovered/Not Resolved]
